FAERS Safety Report 7996162-X (Version None)
Quarter: 2011Q4

REPORT INFORMATION
  Report Type: 
  Country: None (occurrence: None)
  Receive Date: 20111220
  Receipt Date: 20111215
  Transmission Date: 20120403
  Serious: Yes (Life-Threatening, Hospitalization)
  Sender: FDA-Public Use
  Company Number: PHHY2011BE101885

PATIENT
  Sex: Female

DRUGS (4)
  1. EXTAVIA [Suspect]
     Indication: MULTIPLE SCLEROSIS
     Dosage: 250 UG DAILY
     Route: 058
     Dates: start: 20110816, end: 20111101
  2. HORMONES [Concomitant]
     Indication: MENOPAUSE
  3. ALDACTAZIDE [Concomitant]
     Indication: HYPERTENSION
  4. TRAMADOL HCL [Concomitant]

REACTIONS (4)
  - ANGINA PECTORIS [None]
  - PAIN IN EXTREMITY [None]
  - HYPERHIDROSIS [None]
  - ACUTE MYOCARDIAL INFARCTION [None]
